FAERS Safety Report 7956312-8 (Version None)
Quarter: 2011Q4

REPORT INFORMATION
  Report Type: 
  Country: None (occurrence: None)
  Receive Date: 20111205
  Receipt Date: 20111202
  Transmission Date: 20120403
  Serious: No
  Sender: FDA-Public Use
  Company Number: US-B.I. PHARMACEUTICALS,INC./RIDGEFIELD-2011-BP-26192BP

PATIENT
  Sex: Female

DRUGS (11)
  1. SPIRIVA [Suspect]
     Indication: EMPHYSEMA
  2. HYDROXYZINE [Concomitant]
     Indication: URTICARIA
     Dosage: 10 MG
  3. LOSARTAN POTASSIUM [Concomitant]
     Indication: HYPERTENSION
     Dosage: 50 MG
  4. FUROSEMIDE [Concomitant]
     Indication: CARDIAC FAILURE CONGESTIVE
     Dosage: 4 MG
  5. KETOPROFEN [Concomitant]
     Indication: ARTHRITIS
  6. KETOPROFEN [Concomitant]
     Indication: PAIN
  7. SPIRIVA [Suspect]
     Indication: CHRONIC OBSTRUCTIVE PULMONARY DISEASE
     Dosage: 18 MCG
     Route: 055
     Dates: start: 20091001
  8. ASPIRIN [Concomitant]
     Indication: PROPHYLAXIS
     Dosage: 81 MG
  9. SPIRIVA [Suspect]
     Indication: ASTHMA
  10. COMBIVENT [Concomitant]
     Indication: ASTHMA
  11. HYDROCODONE [Concomitant]
     Indication: INSOMNIA

REACTIONS (1)
  - DYSPNOEA [None]
